FAERS Safety Report 23777666 (Version 1)
Quarter: 2024Q2

REPORT INFORMATION
  Report Type: Spontaneous
  Country: CN (occurrence: CN)
  Receive Date: 20240424
  Receipt Date: 20240424
  Transmission Date: 20240715
  Serious: Yes (Other)
  Sender: FDA-Public Use
  Company Number: CN-RDY-LIT/CHN/24/0006003

PATIENT
  Age: 38 Year
  Sex: Male

DRUGS (12)
  1. OLANZAPINE [Suspect]
     Active Substance: OLANZAPINE
     Indication: Schizophrenia
     Dosage: 5 MG QN
     Route: 048
  2. OLANZAPINE [Suspect]
     Active Substance: OLANZAPINE
     Dosage: 10 MG ONCE
     Route: 048
  3. BUPRENORPHINE [Suspect]
     Active Substance: BUPRENORPHINE
     Indication: Drug withdrawal maintenance therapy
     Dosage: BID
     Route: 048
     Dates: start: 2010, end: 2020
  4. BUPRENORPHINE [Suspect]
     Active Substance: BUPRENORPHINE
     Dosage: BID
     Route: 048
     Dates: start: 2020, end: 20220225
  5. BUPRENORPHINE [Suspect]
     Active Substance: BUPRENORPHINE
     Dosage: TID
     Route: 048
     Dates: start: 2008, end: 2010
  6. ESTAZOLAM [Suspect]
     Active Substance: ESTAZOLAM
     Indication: Withdrawal syndrome
     Dosage: THE EVENING BEFORE ADMISSION,
     Route: 048
     Dates: start: 2008, end: 2010
  7. ESTAZOLAM [Suspect]
     Active Substance: ESTAZOLAM
     Dosage: THE MORNING OF ADMISSION,
     Route: 048
     Dates: start: 2010, end: 2020
  8. BUPRENORPHINE [Suspect]
     Active Substance: BUPRENORPHINE
     Indication: Withdrawal syndrome
     Dosage: 1 MG TWO TIMES WHILE WAITING FOR ADMISSION TO HOSPITAL
     Route: 060
     Dates: start: 2008, end: 2010
  9. IRBESARTAN [Suspect]
     Active Substance: IRBESARTAN
     Indication: Hypertension
     Route: 048
     Dates: start: 2008, end: 2010
  10. IRBESARTAN [Suspect]
     Active Substance: IRBESARTAN
     Dosage: THE MORNING OF ADMISSION,
     Route: 048
     Dates: start: 2010, end: 2020
  11. NIFEDIPINE [Suspect]
     Active Substance: NIFEDIPINE
     Indication: Hypertension
     Route: 048
     Dates: start: 2008, end: 2010
  12. NIFEDIPINE [Suspect]
     Active Substance: NIFEDIPINE
     Dosage: THE MORNING OF ADMISSION,
     Route: 048
     Dates: start: 2010, end: 2020

REACTIONS (3)
  - Respiratory failure [Recovered/Resolved]
  - Drug interaction [Recovered/Resolved]
  - Intentional product misuse [Unknown]
